FAERS Safety Report 10248349 (Version 2)
Quarter: 2014Q2

REPORT INFORMATION
  Report Type: Spontaneous
  Country: US (occurrence: US)
  Receive Date: 20140620
  Receipt Date: 20140620
  Transmission Date: 20141212
  Serious: No
  Sender: FDA-Public Use
  Company Number: US-DRREDDYS-USA/USA/13/0034967

PATIENT
  Age: 44 Year
  Sex: Female

DRUGS (2)
  1. VALACYCLOVIR TABLETS [Suspect]
     Indication: ORAL HERPES
     Route: 048
     Dates: start: 201310
  2. IBUPROFEN [Concomitant]
     Indication: PRODUCT USED FOR UNKNOWN INDICATION
     Route: 065

REACTIONS (3)
  - Extra dose administered [Unknown]
  - Drug ineffective [Unknown]
  - Product quality issue [Unknown]
